FAERS Safety Report 10268206 (Version 2)
Quarter: 2014Q3

REPORT INFORMATION
  Report Type: Report from Study
  Country: BR (occurrence: BR)
  Receive Date: 20140630
  Receipt Date: 20140728
  Transmission Date: 20150326
  Serious: Yes (Other)
  Sender: FDA-Public Use
  Company Number: PHHY2014BR079455

PATIENT
  Sex: Female
  Weight: 50 kg

DRUGS (1)
  1. EXJADE [Suspect]
     Active Substance: DEFERASIROX
     Indication: MYELODYSPLASTIC SYNDROME
     Dosage: 4 DF, DAILY
     Dates: start: 201206

REACTIONS (7)
  - Haemarthrosis [Unknown]
  - Myalgia [Unknown]
  - Arthralgia [Unknown]
  - Fall [Unknown]
  - Breast haematoma [Unknown]
  - Joint injury [Unknown]
  - Laceration [Unknown]
